FAERS Safety Report 19678541 (Version 2)
Quarter: 2021Q3

REPORT INFORMATION
  Report Type: Spontaneous
  Country: DE (occurrence: DE)
  Receive Date: 20210809
  Receipt Date: 20210817
  Transmission Date: 20211014
  Serious: Yes (Other)
  Sender: FDA-Public Use
  Company Number: DE-FERRINGPH-2021FE05054

PATIENT
  Sex: Male

DRUGS (2)
  1. DEGARELIX [Suspect]
     Active Substance: DEGARELIX
     Indication: HORMONE-REFRACTORY PROSTATE CANCER
     Dosage: UNK
     Route: 065
  2. XTANDI [Suspect]
     Active Substance: ENZALUTAMIDE
     Indication: HORMONE-REFRACTORY PROSTATE CANCER
     Dosage: UNK
     Route: 065

REACTIONS (12)
  - Product use in unapproved indication [Unknown]
  - Memory impairment [Unknown]
  - Asthenia [Unknown]
  - Muscular weakness [Unknown]
  - Negative thoughts [Unknown]
  - Fatigue [Unknown]
  - Visual impairment [Unknown]
  - Mental impairment [Unknown]
  - Condition aggravated [Unknown]
  - Listless [Unknown]
  - Dizziness [Unknown]
  - Drug ineffective [Unknown]
